FAERS Safety Report 20557249 (Version 2)
Quarter: 2022Q2

REPORT INFORMATION
  Report Type: Spontaneous
  Country: US (occurrence: US)
  Receive Date: 20220307
  Receipt Date: 20220418
  Transmission Date: 20220721
  Serious: No
  Sender: FDA-Public Use
  Company Number: US-PFIZER INC-202100955944

PATIENT
  Age: 22 Year
  Sex: Male
  Weight: 106.58 kg

DRUGS (1)
  1. GENOTROPIN [Suspect]
     Active Substance: SOMATROPIN
     Indication: Prader-Willi syndrome
     Dosage: 1 MG, DAILY
     Dates: start: 2001

REACTIONS (3)
  - Device mechanical issue [Recovered/Resolved]
  - Drug dose omission by device [Recovered/Resolved]
  - Device use error [Recovered/Resolved]
